FAERS Safety Report 8438366-8 (Version None)
Quarter: 2012Q2

REPORT INFORMATION
  Report Type: 
  Country: None (occurrence: None)
  Receive Date: 20120614
  Receipt Date: 20120606
  Transmission Date: 20120825
  Serious: Yes (Disabling)
  Sender: FDA-Public Use
  Company Number: US-MERCK-1206USA01131

PATIENT
  Age: 70 Year
  Sex: Female

DRUGS (8)
  1. FOSAMAX [Suspect]
     Indication: OSTEOPOROSIS
     Route: 048
     Dates: start: 20000101, end: 20050601
  2. ACTONEL [Suspect]
     Indication: OSTEOPOROSIS PROPHYLAXIS
     Route: 065
     Dates: start: 20050101, end: 20070401
  3. FOSAMAX [Suspect]
     Route: 048
     Dates: start: 20070101, end: 20080201
  4. ACTONEL [Suspect]
     Indication: OSTEOPOROSIS
     Route: 065
     Dates: start: 20050101, end: 20070401
  5. ALENDRONATE SODIUM [Suspect]
     Indication: OSTEOPOROSIS PROPHYLAXIS
     Route: 048
     Dates: start: 20080101, end: 20110701
  6. FOSAMAX [Suspect]
     Route: 048
     Dates: start: 20070101, end: 20080201
  7. ALENDRONATE SODIUM [Suspect]
     Indication: OSTEOPOROSIS
     Route: 048
     Dates: start: 20080101, end: 20110701
  8. FOSAMAX [Suspect]
     Indication: OSTEOPOROSIS PROPHYLAXIS
     Route: 048
     Dates: start: 20000101, end: 20050601

REACTIONS (3)
  - LOW TURNOVER OSTEOPATHY [None]
  - FEMUR FRACTURE [None]
  - OSTEOPOROSIS [None]
